FAERS Safety Report 4785141-1 (Version None)
Quarter: 2005Q3

REPORT INFORMATION
  Report Type: 
  Country: None (occurrence: None)
  Receive Date: 20050928
  Receipt Date: 20050301
  Transmission Date: 20060218
  Serious: Yes (Hospitalization)
  Sender: FDA-Public Use
  Company Number: 2005FR-00317

PATIENT
  Age: 79 Year
  Sex: Male

DRUGS (4)
  1. IBUPROFEN [Suspect]
     Indication: PAIN
     Dosage: 400 MG TDS ORAL
     Route: 048
     Dates: start: 20050104, end: 20050118
  2. ASPIRIN [Suspect]
     Indication: ANTIPLATELET THERAPY
     Dosage: 75MG ORAL
     Route: 048
     Dates: start: 20020101, end: 20050118
  3. PARACETAMOL [Concomitant]
  4. NIFEDIPINE [Concomitant]

REACTIONS (1)
  - GASTRIC ULCER PERFORATION [None]
